FAERS Safety Report 4715283-8 (Version None)
Quarter: 2005Q3

REPORT INFORMATION
  Report Type: 
  Country: None (occurrence: None)
  Receive Date: 20050715
  Receipt Date: 20050708
  Transmission Date: 20060218
  Serious: Yes (Life-Threatening)
  Sender: FDA-Public Use
  Company Number: PHBS2005DK09869

PATIENT
  Sex: Female

DRUGS (1)
  1. SYNTOCINON [Suspect]
     Indication: ABNORMAL LABOUR
     Dosage: 10 IU/ML; 6 ML/HOUR
     Route: 042

REACTIONS (5)
  - DROOLING [None]
  - DYSPHAGIA [None]
  - DYSPNOEA [None]
  - PARAESTHESIA ORAL [None]
  - PRURITUS [None]
